FAERS Safety Report 7315975-0 (Version None)
Quarter: 2011Q1

REPORT INFORMATION
  Report Type: 
  Country: None (occurrence: None)
  Receive Date: 20110225
  Receipt Date: 20110213
  Transmission Date: 20110831
  Serious: Yes (Other)
  Sender: FDA-Public Use
  Company Number: PHHY2011BR12710

PATIENT
  Sex: Male

DRUGS (1)
  1. DIOVAN AMLO [Suspect]
     Indication: HYPERTENSION
     Dosage: 1 DF, 1 TABLET OF EACH ACTIVE SUBSTANCE A DAY
     Route: 048
     Dates: end: 20100801

REACTIONS (1)
  - INTERVERTEBRAL DISC PROTRUSION [None]
